FAERS Safety Report 12876107 (Version 1)
Quarter: 2016Q4

REPORT INFORMATION
  Report Type: Spontaneous
  Country: US (occurrence: US)
  Receive Date: 20161024
  Receipt Date: 20161024
  Transmission Date: 20170207
  Serious: No
  Sender: FDA-Public Use
  Company Number: US-JAZZ-2016-US-015161

PATIENT
  Sex: Female

DRUGS (31)
  1. MODAFINIL. [Concomitant]
     Active Substance: MODAFINIL
     Indication: NARCOLEPSY
  2. BUSPIRONE HCL [Concomitant]
     Active Substance: BUSPIRONE HYDROCHLORIDE
     Indication: ANXIETY
  3. TRETINOIN. [Concomitant]
     Active Substance: TRETINOIN
     Indication: ACNE CYSTIC
  4. TOVIAZ [Concomitant]
     Active Substance: FESOTERODINE FUMARATE
  5. LINZESS [Concomitant]
     Active Substance: LINACLOTIDE
     Indication: IRRITABLE BOWEL SYNDROME
  6. CALCIUM +D [Concomitant]
     Active Substance: CALCIUM\VITAMIN D
  7. MULTIVITAMIN [Concomitant]
     Active Substance: VITAMINS
  8. AMNESTEEM [Concomitant]
     Active Substance: ISOTRETINOIN
  9. PREMARIN [Concomitant]
     Active Substance: ESTROGENS, CONJUGATED
     Indication: VAGINAL DISORDER
  10. VITAMIN B COMPLEX [Concomitant]
     Active Substance: CYANOCOBALAMIN\DEXPANTHENOL\NIACINAMIDE\PYRIDOXINE HYDROCHLORIDE\RIBOFLAVIN 5^-PHOSPHATE SODIUM\THIAMINE HYDROCHLORIDE\VITAMIN B COMPLEX
  11. ACZONE [Concomitant]
     Active Substance: DAPSONE
     Indication: ACNE CYSTIC
  12. IMIPRAMINE [Concomitant]
     Active Substance: IMIPRAMINE
  13. AZELASTINE [Concomitant]
     Active Substance: AZELASTINE
  14. KLONOPIN [Concomitant]
     Active Substance: CLONAZEPAM
  15. LEVOTHYROXINE SODIUM. [Concomitant]
     Active Substance: LEVOTHYROXINE SODIUM
     Indication: HYPOTHYROIDISM
  16. METHYLPHENIDATE. [Concomitant]
     Active Substance: METHYLPHENIDATE
     Indication: NARCOLEPSY
  17. METFORMIN [Concomitant]
     Active Substance: METFORMIN HYDROCHLORIDE
     Indication: DIABETES MELLITUS
  18. XYREM [Suspect]
     Active Substance: SODIUM OXYBATE
     Indication: CATAPLEXY
     Dosage: 3 G, BID
     Route: 048
     Dates: start: 201307, end: 201308
  19. XYREM [Suspect]
     Active Substance: SODIUM OXYBATE
     Dosage: 4.5 G, BID
     Route: 048
     Dates: start: 201308
  20. FISH OIL CONCENTRATE [Concomitant]
  21. FLUTICASONE [Concomitant]
     Active Substance: FLUTICASONE\FLUTICASONE PROPIONATE
  22. XYREM [Suspect]
     Active Substance: SODIUM OXYBATE
     Indication: NARCOLEPSY
     Dosage: 2.25 G, BID
     Route: 048
     Dates: start: 201307, end: 201307
  23. HYOSCYAMINE. [Concomitant]
     Active Substance: HYOSCYAMINE
     Indication: IRRITABLE BOWEL SYNDROME
  24. SPIRONOLACTONE. [Concomitant]
     Active Substance: SPIRONOLACTONE
     Indication: ACNE CYSTIC
  25. PROGESTERONE. [Concomitant]
     Active Substance: PROGESTERONE
     Indication: MENSTRUAL DISORDER
  26. NUVIGIL [Concomitant]
     Active Substance: ARMODAFINIL
  27. CLONAZEPAM. [Concomitant]
     Active Substance: CLONAZEPAM
  28. IMIPRAMINE HCL [Concomitant]
     Active Substance: IMIPRAMINE HYDROCHLORIDE
  29. PRISTIQ EXTENDED-RELEASE [Concomitant]
     Active Substance: DESVENLAFAXINE SUCCINATE
     Indication: DEPRESSION
  30. VESICARE [Concomitant]
     Active Substance: SOLIFENACIN SUCCINATE
  31. URIBEL [Concomitant]
     Active Substance: HYOSCYAMINE SULFATE\METHENAMINE\METHYLENE BLUE\PHENYL SALICYLATE\SODIUM PHOSPHATE, MONOBASIC, MONOHYDRATE

REACTIONS (1)
  - Tremor [Recovering/Resolving]
